FAERS Safety Report 6264433-3 (Version None)
Quarter: 2009Q3

REPORT INFORMATION
  Report Type: 
  Country: None (occurrence: None)
  Receive Date: 20090710
  Receipt Date: 20090702
  Transmission Date: 20100115
  Serious: Yes (Hospitalization)
  Sender: FDA-Public Use
  Company Number: Z0001096A

PATIENT
  Sex: Male
  Weight: 49 kg

DRUGS (2)
  1. TOPOTECAN [Suspect]
     Indication: NEOPLASM
     Dosage: 4MG CYCLIC
     Route: 048
     Dates: start: 20090605
  2. PAZOPANIB [Suspect]
     Indication: NEOPLASM
     Dosage: 400MG PER DAY
     Route: 048
     Dates: start: 20090522

REACTIONS (1)
  - URINARY RETENTION [None]
